FAERS Safety Report 7274484-8 (Version None)
Quarter: 2011Q1

REPORT INFORMATION
  Report Type: 
  Country: None (occurrence: None)
  Receive Date: 20110204
  Receipt Date: 20110127
  Transmission Date: 20110831
  Serious: Yes (Hospitalization)
  Sender: FDA-Public Use
  Company Number: JP-ASTELLAS-2010JP007574

PATIENT
  Sex: Male
  Weight: 50.2 kg

DRUGS (6)
  1. MAGLAX [Concomitant]
     Indication: CONSTIPATION
     Dosage: 330 MG, TID
     Route: 048
     Dates: start: 20101007
  2. VESICARE [Suspect]
     Indication: HYPERTONIC BLADDER
     Dosage: 5 MG, UID/QD
     Route: 048
     Dates: start: 20101109, end: 20101210
  3. VESICARE [Suspect]
     Indication: DYSURIA
  4. ARICEPT [Concomitant]
     Indication: DEMENTIA
     Dosage: 5 MG, UID/QD
     Route: 048
     Dates: start: 20101126
  5. TAMSULOSIN HCL [Concomitant]
     Indication: DYSURIA
     Dosage: 0.2 MG, UID/QD
     Route: 048
     Dates: start: 20101007, end: 20101210
  6. ASPIRIN [Concomitant]
     Indication: ANGINA PECTORIS
     Dosage: 100 MG, UID/QD
     Route: 048
     Dates: start: 20101007

REACTIONS (2)
  - RENAL FAILURE [None]
  - HYPERKALAEMIA [None]
